FAERS Safety Report 6772493-6 (Version None)
Quarter: 2010Q2

REPORT INFORMATION
  Report Type: 
  Country: None (occurrence: None)
  Receive Date: 20100616
  Receipt Date: 20100319
  Transmission Date: 20101027
  Serious: No
  Sender: FDA-Public Use
  Company Number: US-ASTRAZENECA-2010SE12351

PATIENT
  Age: 63 Year
  Sex: Female
  Weight: 146.5 kg

DRUGS (4)
  1. PULMICORT FLEXHALER [Suspect]
     Indication: ASTHMA
     Dosage: TOTAL DAILY DOSE: 1440 UG; 4 PUFFS BID
     Route: 055
  2. VENTOLIN HFA [Concomitant]
     Indication: ASTHMA
  3. ERYTHROMYCIN [Concomitant]
     Indication: PNEUMONIA
  4. MUCINEX [Concomitant]

REACTIONS (5)
  - ABDOMINAL PAIN [None]
  - ARRHYTHMIA [None]
  - EPISTAXIS [None]
  - METRORRHAGIA [None]
  - PALPITATIONS [None]
